FAERS Safety Report 14669215 (Version 3)
Quarter: 2018Q3

REPORT INFORMATION
  Report Type: Report from Study
  Country: BR (occurrence: BR)
  Receive Date: 20180322
  Receipt Date: 20180802
  Transmission Date: 20181010
  Serious: Yes (Hospitalization, Other)
  Sender: FDA-Public Use
  Company Number: BR-JNJFOC-20180322106

PATIENT
  Sex: Female
  Weight: 62 kg

DRUGS (7)
  1. CLONAZEPAM. [Concomitant]
     Active Substance: CLONAZEPAM
     Route: 065
  2. MEROPENEM. [Concomitant]
     Active Substance: MEROPENEM
     Route: 065
  3. SIMPONI [Suspect]
     Active Substance: GOLIMUMAB
     Indication: RHEUMATOID ARTHRITIS
     Route: 058
     Dates: end: 201801
  4. DORENE [Concomitant]
     Route: 065
  5. SIMPONI [Suspect]
     Active Substance: GOLIMUMAB
     Indication: RHEUMATOID ARTHRITIS
     Route: 058
     Dates: start: 2015, end: 20171005
  6. ERTAPENEM. [Concomitant]
     Active Substance: ERTAPENEM SODIUM
     Route: 065
  7. PREGABALIN. [Concomitant]
     Active Substance: PREGABALIN
     Route: 065

REACTIONS (8)
  - Rib fracture [Recovered/Resolved]
  - Oedema peripheral [Unknown]
  - Limb asymmetry [Recovering/Resolving]
  - Device related infection [Unknown]
  - Nosocomial infection [Recovered/Resolved]
  - Accident [Unknown]
  - Weight decreased [Unknown]
  - Pain [Not Recovered/Not Resolved]

NARRATIVE: CASE EVENT DATE: 2015
